FAERS Safety Report 18578858 (Version 1)
Quarter: 2020Q4

REPORT INFORMATION
  Report Type: Report from Study
  Country: EG (occurrence: EG)
  Receive Date: 20201204
  Receipt Date: 20201204
  Transmission Date: 20210114
  Serious: Yes (Other)
  Sender: FDA-Public Use
  Company Number: EG-AMGEN-EGYSL2020177355

PATIENT
  Age: 68 Year
  Sex: Female

DRUGS (2)
  1. DEVAROL [Concomitant]
     Dosage: 200,000 I.U
     Dates: start: 20201116
  2. XGEVA [Suspect]
     Active Substance: DENOSUMAB
     Indication: PROPHYLAXIS
     Dosage: UNK, QMO
     Route: 065

REACTIONS (11)
  - Red blood cell count decreased [Unknown]
  - Vitamin D decreased [Unknown]
  - Haematocrit decreased [Unknown]
  - Mean cell haemoglobin decreased [Unknown]
  - Laboratory test abnormal [Unknown]
  - Red cell distribution width increased [Unknown]
  - Blood calcium decreased [Recovering/Resolving]
  - Haemoglobin decreased [Unknown]
  - Decreased immune responsiveness [Recovering/Resolving]
  - Mean cell volume decreased [Unknown]
  - Decreased appetite [Unknown]
